FAERS Safety Report 17200612 (Version 1)
Quarter: 2019Q4

REPORT INFORMATION
  Report Type: Spontaneous
  Country: US (occurrence: US)
  Receive Date: 20191226
  Receipt Date: 20191226
  Transmission Date: 20200122
  Serious: Yes (Hospitalization, Other)
  Sender: FDA-Public Use
  Company Number: US-NOVOPROD-702795

PATIENT
  Age: 75 Year
  Sex: Male

DRUGS (2)
  1. LEVEMIR [Suspect]
     Active Substance: INSULIN DETEMIR
     Dosage: UNK INCREASED DOSE
     Route: 058
  2. LEVEMIR [Suspect]
     Active Substance: INSULIN DETEMIR
     Indication: TYPE 2 DIABETES MELLITUS
     Dosage: 63 IU, QD (63 UNITS ONCE A DAY)
     Route: 058

REACTIONS (5)
  - Nephrolithiasis [Recovered/Resolved]
  - Bladder obstruction [Recovered/Resolved]
  - Scar [Recovered/Resolved]
  - Urinary tract infection [Not Recovered/Not Resolved]
  - Blood glucose increased [Not Recovered/Not Resolved]

NARRATIVE: CASE EVENT DATE: 201909
